FAERS Safety Report 24428512 (Version 1)
Quarter: 2024Q4

REPORT INFORMATION
  Report Type: Spontaneous
  Country: FR (occurrence: FR)
  Receive Date: 20241011
  Receipt Date: 20241011
  Transmission Date: 20250115
  Serious: Yes (Other)
  Sender: TEVA
  Company Number: FR-TEVA-VS-3251033

PATIENT
  Age: 52 Year
  Sex: Female

DRUGS (1)
  1. COTRIMOXAZOLE [Suspect]
     Active Substance: SULFAMETHOXAZOLE\TRIMETHOPRIM
     Indication: Urinary tract infection
     Dosage: FORM STRENGTH: 800 MG/160 MG/ TEVA/ ONE TABLET TO TAKE IN THE MORNING AND IN THE EVENING
     Route: 065
     Dates: start: 20240920

REACTIONS (2)
  - Neuralgia [Not Recovered/Not Resolved]
  - Burning sensation [Not Recovered/Not Resolved]

NARRATIVE: CASE EVENT DATE: 20240921
